FAERS Safety Report 14614233 (Version 2)
Quarter: 2018Q2

REPORT INFORMATION
  Report Type: Spontaneous
  Country: JP (occurrence: JP)
  Receive Date: 20180308
  Receipt Date: 20180413
  Transmission Date: 20180711
  Serious: Yes (Death, Life-Threatening, Hospitalization, Other)
  Sender: FDA-Public Use
  Company Number: JP-ELI_LILLY_AND_COMPANY-JP201803001218

PATIENT
  Age: 62 Year
  Sex: Male
  Weight: 48 kg

DRUGS (13)
  1. CYRAMZA [Suspect]
     Active Substance: RAMUCIRUMAB
     Indication: GASTRIC CANCER RECURRENT
     Dosage: 380 MG, CYCLICAL
     Route: 041
     Dates: start: 20161211, end: 20171204
  2. MAGMITT [Concomitant]
     Active Substance: MAGNESIUM OXIDE
  3. MIYA-BM [Concomitant]
     Active Substance: CLOSTRIDIUM BUTYRICUM SPORES STRAIN M-55
  4. URIEF [Concomitant]
     Active Substance: SILODOSIN
  5. DECADRON [Concomitant]
     Active Substance: DEXAMETHASONE
  6. OXYNORM [Concomitant]
     Active Substance: OXYCODONE HYDROCHLORIDE
  7. FUROSEMIDE. [Concomitant]
     Active Substance: FUROSEMIDE
  8. LOXOPROFEN SODIUM HYDRATE [Concomitant]
     Active Substance: LOXOPROFEN SODIUM DIHYDRATE
     Dosage: UNK
     Dates: start: 20171021, end: 20171210
  9. PACLITAXEL. [Concomitant]
     Active Substance: PACLITAXEL
     Indication: GASTRIC CANCER RECURRENT
     Dosage: UNK
     Dates: start: 20161211, end: 20171204
  10. GENINAX [Concomitant]
     Active Substance: GARENOXACIN MESYLATE
  11. OXYCONTIN [Concomitant]
     Active Substance: OXYCODONE HYDROCHLORIDE
  12. JUZENTAIHOTO                       /07985601/ [Concomitant]
     Active Substance: HERBALS
  13. AZILVA [Concomitant]
     Active Substance: AZILSARTAN KAMEDOXOMIL

REACTIONS (4)
  - Anaemia [Not Recovered/Not Resolved]
  - Gastrointestinal perforation [Unknown]
  - Shock [Fatal]
  - Dehydration [Not Recovered/Not Resolved]

NARRATIVE: CASE EVENT DATE: 20171211
